FAERS Safety Report 23271995 (Version 2)
Quarter: 2023Q4

REPORT INFORMATION
  Report Type: Spontaneous
  Country: RU (occurrence: RU)
  Receive Date: 20231207
  Receipt Date: 20231220
  Transmission Date: 20240110
  Serious: Yes (Hospitalization, Other)
  Sender: FDA-Public Use
  Company Number: RU-AMGEN-RUSSP2023211517

PATIENT
  Age: 59 Year
  Sex: Female

DRUGS (2)
  1. CINACALCET HYDROCHLORIDE [Suspect]
     Active Substance: CINACALCET HYDROCHLORIDE
     Indication: Hypercalcaemia
     Dosage: 60 MILLIGRAM, QD
     Route: 065
  2. PROLIA [Suspect]
     Active Substance: DENOSUMAB
     Indication: Osteoporosis
     Dosage: 60 MILLIGRAM, Q6MO
     Route: 058

REACTIONS (16)
  - Blood parathyroid hormone increased [Unknown]
  - Bone pain [Unknown]
  - Kyphosis [Unknown]
  - Chronic kidney disease [Unknown]
  - Neck pain [Recovering/Resolving]
  - Hypomagnesaemia [Unknown]
  - Spinal compression fracture [Unknown]
  - Osteoporosis [Unknown]
  - Hungry bone syndrome [Unknown]
  - Atrial fibrillation [Unknown]
  - Purine metabolism disorder [Unknown]
  - Scoliosis [Unknown]
  - Thyroid mass [Unknown]
  - Muscular weakness [Unknown]
  - Fatigue [Unknown]
  - Headache [Unknown]

NARRATIVE: CASE EVENT DATE: 20210101
